FAERS Safety Report 5341976-8 (Version None)
Quarter: 2007Q2

REPORT INFORMATION
  Report Type: 
  Country: None (occurrence: None)
  Receive Date: 20070530
  Receipt Date: 20070530
  Transmission Date: 20071010
  Serious: Yes (Hospitalization)
  Sender: FDA-Public Use
  Company Number: None

PATIENT
  Sex: Male
  Weight: 82.6 kg

DRUGS (1)
  1. CYTARABINE [Suspect]
     Dosage: 34740 MG

REACTIONS (4)
  - ESCHERICHIA SEPSIS [None]
  - HYPOTENSION [None]
  - NEUTROPENIA [None]
  - RESPIRATORY FAILURE [None]
